FAERS Safety Report 18088254 (Version 1)
Quarter: 2020Q3

REPORT INFORMATION
  Report Type: Spontaneous
  Country: DE (occurrence: BR)
  Receive Date: 20200729
  Receipt Date: 20200729
  Transmission Date: 20201103
  Serious: Yes (Other)
  Sender: FDA-Public Use
  Company Number: BR-ELI_LILLY_AND_COMPANY-BR202007011914

PATIENT
  Age: 59 Year
  Sex: Male

DRUGS (11)
  1. OXALIPLATIN. [Concomitant]
     Active Substance: OXALIPLATIN
     Indication: COLORECTAL CANCER
     Dosage: 170 MG, UNK
     Dates: start: 20200608
  2. PANITUMUMAB [Concomitant]
     Active Substance: PANITUMUMAB
     Indication: COLORECTAL CANCER
     Dosage: UNK
     Dates: start: 20180111
  3. BEVACIZUMAB. [Concomitant]
     Active Substance: BEVACIZUMAB
     Indication: COLORECTAL CANCER
     Dosage: UNK
  4. ERBITUX [Suspect]
     Active Substance: CETUXIMAB
     Dosage: 1000 MG, UNKNOWN
     Route: 042
     Dates: start: 20200608
  5. CALCIUM FOLINATE [Concomitant]
     Active Substance: LEUCOVORIN CALCIUM
     Indication: COLORECTAL CANCER
     Dosage: 800 MG, UNK
     Dates: start: 20200608
  6. FLUOROURACIL. [Concomitant]
     Active Substance: FLUOROURACIL
     Dosage: 800 MG, UNK
  7. FOSAPREPITANT [Concomitant]
     Active Substance: FOSAPREPITANT
     Indication: PREMEDICATION
     Dosage: 150 MG, UNK
  8. ERBITUX [Suspect]
     Active Substance: CETUXIMAB
     Indication: COLORECTAL CANCER
     Dosage: 950 MG, UNKNOWN
     Route: 042
     Dates: start: 20171213, end: 20180111
  9. FLUOROURACIL. [Concomitant]
     Active Substance: FLUOROURACIL
     Indication: COLORECTAL CANCER
     Dosage: 4800 MG, UNK
     Dates: start: 20200608
  10. PALONOSETRON. [Concomitant]
     Active Substance: PALONOSETRON HYDROCHLORIDE
     Indication: PREMEDICATION
     Dosage: .25 MG, UNK
  11. DIFENIDRIN [Concomitant]
     Active Substance: DIPHENHYDRAMINE
     Indication: PREMEDICATION
     Dosage: 50 MG, UNK

REACTIONS (2)
  - Urticaria [Unknown]
  - Throat tightness [Unknown]

NARRATIVE: CASE EVENT DATE: 20200608
